FAERS Safety Report 12077733 (Version 1)
Quarter: 2016Q1

REPORT INFORMATION
  Report Type: Spontaneous
  Country: CA (occurrence: CA)
  Receive Date: 20160215
  Receipt Date: 20160215
  Transmission Date: 20160526
  Serious: Yes (Other)
  Sender: FDA-Public Use
  Company Number: CA-GLAXOSMITHKLINE-CA2015GSK106216

PATIENT
  Age: 22 Year
  Sex: Female

DRUGS (10)
  1. AZATHIOPRINE SODIUM. [Concomitant]
     Active Substance: AZATHIOPRINE SODIUM
     Indication: PRODUCT USED FOR UNKNOWN INDICATION
     Dosage: UNK
  2. VITAMIN B12 [Concomitant]
     Active Substance: CYANOCOBALAMIN
     Indication: PRODUCT USED FOR UNKNOWN INDICATION
     Dosage: UNK
  3. BENLYSTA [Suspect]
     Active Substance: BELIMUMAB
     Indication: SYSTEMIC LUPUS ERYTHEMATOSUS
     Dosage: 750 MG, UNK
     Route: 042
     Dates: start: 20150623
  4. METHOTREXATE [Concomitant]
     Active Substance: METHOTREXATE
     Indication: PRODUCT USED FOR UNKNOWN INDICATION
     Dosage: 15 MG, UNK
     Route: 048
  5. IMURAN [Concomitant]
     Active Substance: AZATHIOPRINE
     Indication: ALOPECIA
     Dosage: 75 MG, UNK
  6. ASPIRIN. [Concomitant]
     Active Substance: ASPIRIN
     Indication: PRODUCT USED FOR UNKNOWN INDICATION
     Dosage: 80 MG, BID
  7. PREDNISONE. [Concomitant]
     Active Substance: PREDNISONE
     Indication: PRODUCT USED FOR UNKNOWN INDICATION
     Dosage: 7.5 MG, BID
  8. CALCIUM 500 [Concomitant]
     Indication: PRODUCT USED FOR UNKNOWN INDICATION
     Dosage: 500 MG, BID
  9. PANTOLOC [Concomitant]
     Active Substance: PANTOPRAZOLE SODIUM
     Indication: PRODUCT USED FOR UNKNOWN INDICATION
     Dosage: 40 MG, 1D
  10. ADALAT CC [Concomitant]
     Active Substance: NIFEDIPINE
     Indication: RAYNAUD^S PHENOMENON
     Dosage: 30 MG, UNK

REACTIONS (31)
  - Abscess limb [Recovered/Resolved]
  - Nausea [Unknown]
  - Oedema [Unknown]
  - Weight increased [Unknown]
  - Sjogren^s syndrome [Unknown]
  - Pruritus [Unknown]
  - Overdose [Unknown]
  - Alopecia [Unknown]
  - Skin lesion [Unknown]
  - Dry eye [Unknown]
  - Fatigue [Unknown]
  - Inflammation [Unknown]
  - Haematuria [Unknown]
  - Leukopenia [Unknown]
  - Dyspnoea [Unknown]
  - Dental caries [Unknown]
  - Xerosis [Unknown]
  - Complement factor decreased [Unknown]
  - Erythema [Unknown]
  - Dry skin [Unknown]
  - Skin burning sensation [Unknown]
  - Tooth fracture [Unknown]
  - Blood pressure fluctuation [Unknown]
  - Drug dose omission [Unknown]
  - Palpitations [Unknown]
  - DNA antibody [Unknown]
  - Rash [Unknown]
  - Pain [Unknown]
  - Dyspnoea exertional [Unknown]
  - Skin exfoliation [Unknown]
  - Skin plaque [Unknown]

NARRATIVE: CASE EVENT DATE: 20150905
